FAERS Safety Report 6085921-9 (Version None)
Quarter: 2009Q1

REPORT INFORMATION
  Report Type: 
  Country: None (occurrence: None)
  Receive Date: 20090217
  Receipt Date: 20090217
  Transmission Date: 20090719
  Serious: Yes (Hospitalization)
  Sender: FDA-Public Use
  Company Number: None

PATIENT
  Sex: Female
  Weight: 86.1834 kg

DRUGS (1)
  1. OXAPROZIN [Suspect]
     Indication: PAIN IN EXTREMITY
     Dosage: 1 TABLET TWICE DAILY AS NEE PO
     Route: 048
     Dates: start: 20080910, end: 20080915

REACTIONS (4)
  - DYSPHASIA [None]
  - DYSPHEMIA [None]
  - SENSATION OF HEAVINESS [None]
  - TREMOR [None]
